FAERS Safety Report 5795405-0 (Version None)
Quarter: 2008Q2

REPORT INFORMATION
  Report Type: 
  Country: None (occurrence: None)
  Receive Date: 20080630
  Receipt Date: 20080620
  Transmission Date: 20081010
  Serious: Yes (Hospitalization, Other)
  Sender: FDA-Public Use
  Company Number: US-PFIZER INC-2008026403

PATIENT
  Sex: Female
  Weight: 81.6 kg

DRUGS (2)
  1. PREDNISONE [Suspect]
     Indication: CHRONIC OBSTRUCTIVE PULMONARY DISEASE
     Dosage: FREQ: DAILY
  2. CHANTIX [Suspect]
     Indication: TOBACCO ABUSE
     Route: 048
     Dates: start: 20080225, end: 20080425

REACTIONS (2)
  - HALLUCINATION, AUDITORY [None]
  - SUICIDE ATTEMPT [None]
